FAERS Safety Report 10409243 (Version 2)
Quarter: 2014Q3

REPORT INFORMATION
  Report Type: Spontaneous
  Country: DE (occurrence: None)
  Receive Date: 20140822
  Receipt Date: 20140902
  Transmission Date: 20150326
  Serious: No
  Sender: FDA-Public Use
  Company Number: 2014-20187

PATIENT
  Age: 72 Year
  Sex: Female

DRUGS (2)
  1. EYLEA [Suspect]
     Active Substance: AFLIBERCEPT
     Indication: AGE-RELATED MACULAR DEGENERATION
     Dosage: 50 ?L, IN THE LEFT EYE
     Dates: start: 20131008, end: 20131008
  2. AVASTIN [Concomitant]
     Active Substance: BEVACIZUMAB

REACTIONS (2)
  - Retinal haemorrhage [None]
  - Retinal pigment epithelial tear [None]

NARRATIVE: CASE EVENT DATE: 20140221
